FAERS Safety Report 4495305-2 (Version None)
Quarter: 2004Q4

REPORT INFORMATION
  Report Type: 
  Country: None (occurrence: None)
  Receive Date: 20041108
  Receipt Date: 20040930
  Transmission Date: 20050328
  Serious: No
  Sender: FDA-Public Use
  Company Number: US-GLAXOSMITHKLINE-A0528091A

PATIENT
  Sex: Male

DRUGS (33)
  1. AVANDAMET [Suspect]
     Dosage: 1TAB THREE TIMES PER DAY
     Route: 048
     Dates: start: 20020101
  2. PRILOSEC [Concomitant]
     Indication: DRUG USE FOR UNKNOWN INDICATION
     Route: 048
  3. ZOCOR [Concomitant]
     Indication: DRUG USE FOR UNKNOWN INDICATION
     Route: 048
  4. TYLENOL W/ CODEINE NO. 4 [Concomitant]
     Indication: DRUG USE FOR UNKNOWN INDICATION
     Route: 048
  5. DIOVAN [Concomitant]
     Indication: DRUG USE FOR UNKNOWN INDICATION
     Route: 048
  6. ZEBETA [Concomitant]
     Indication: DRUG USE FOR UNKNOWN INDICATION
     Route: 048
  7. DETROL LA [Concomitant]
     Indication: DRUG USE FOR UNKNOWN INDICATION
     Route: 048
  8. LORAZEPAM [Concomitant]
     Indication: DRUG USE FOR UNKNOWN INDICATION
  9. ASPIRIN [Concomitant]
     Indication: DRUG USE FOR UNKNOWN INDICATION
     Route: 048
  10. VITAMIN E [Concomitant]
     Indication: DRUG USE FOR UNKNOWN INDICATION
  11. VITAMIN C [Concomitant]
     Indication: DRUG USE FOR UNKNOWN INDICATION
  12. LYCOPENE [Concomitant]
     Indication: DRUG USE FOR UNKNOWN INDICATION
  13. FLAX SEED OIL [Concomitant]
     Indication: DRUG USE FOR UNKNOWN INDICATION
  14. BETA CAROTENE [Concomitant]
     Indication: DRUG USE FOR UNKNOWN INDICATION
  15. ZINC [Concomitant]
     Indication: DRUG USE FOR UNKNOWN INDICATION
  16. CHROMIUM [Concomitant]
     Indication: DRUG USE FOR UNKNOWN INDICATION
  17. BIOTIN [Concomitant]
     Indication: DRUG USE FOR UNKNOWN INDICATION
  18. CALCIUM + VITAMIN D [Concomitant]
     Indication: DRUG USE FOR UNKNOWN INDICATION
     Route: 048
  19. MAGNESIUM [Concomitant]
     Indication: DRUG USE FOR UNKNOWN INDICATION
  20. COD LIVER OIL [Concomitant]
     Indication: DRUG USE FOR UNKNOWN INDICATION
  21. LUTEIN [Concomitant]
     Indication: DRUG USE FOR UNKNOWN INDICATION
  22. SELENIUM TRACE METAL ADDITIVE [Concomitant]
     Indication: DRUG USE FOR UNKNOWN INDICATION
  23. GREEN TEA EXTRACT [Concomitant]
     Indication: DRUG USE FOR UNKNOWN INDICATION
  24. GINKO BILOBA [Concomitant]
     Indication: DRUG USE FOR UNKNOWN INDICATION
  25. GARLIC [Concomitant]
     Indication: DRUG USE FOR UNKNOWN INDICATION
  26. FISH OIL [Concomitant]
     Indication: DRUG USE FOR UNKNOWN INDICATION
  27. ASTAXANTHIN [Concomitant]
     Indication: DRUG USE FOR UNKNOWN INDICATION
  28. GRAPE SEED EXTRACT [Concomitant]
     Indication: DRUG USE FOR UNKNOWN INDICATION
  29. BILBERRY [Concomitant]
     Indication: DRUG USE FOR UNKNOWN INDICATION
  30. BLUEBERRY DERIVITIVES [Concomitant]
     Indication: DRUG USE FOR UNKNOWN INDICATION
  31. SAW PALMETTO [Concomitant]
     Indication: DRUG USE FOR UNKNOWN INDICATION
  32. ALPHALIPOIC ACID [Concomitant]
     Indication: DRUG USE FOR UNKNOWN INDICATION
  33. PSYLLIUM HUSKS [Concomitant]
     Indication: DRUG USE FOR UNKNOWN INDICATION

REACTIONS (1)
  - DRUG INEFFECTIVE [None]
